FAERS Safety Report 17410044 (Version 1)
Quarter: 2020Q1

REPORT INFORMATION
  Report Type: Report from Study
  Country: US (occurrence: US)
  Receive Date: 20200212
  Receipt Date: 20200212
  Transmission Date: 20200409
  Serious: Yes (Hospitalization)
  Sender: FDA-Public Use
  Company Number: US-GILEAD-2020-0450571

PATIENT
  Age: 17 Year
  Sex: Female

DRUGS (28)
  1. BIOTIN [Concomitant]
     Active Substance: BIOTIN
  2. CELECOXIB. [Concomitant]
     Active Substance: CELECOXIB
  3. COQ10 [UBIDECARENONE] [Concomitant]
     Active Substance: UBIDECARENONE
  4. CYPROHEPTADINE. [Concomitant]
     Active Substance: CYPROHEPTADINE
  5. IBUPROFEN. [Concomitant]
     Active Substance: IBUPROFEN
  6. BACTERIOSTATIC SODIUM CHLORIDE [Concomitant]
     Active Substance: SODIUM CHLORIDE
  7. CREON [Concomitant]
     Active Substance: PANCRELIPASE AMYLASE\PANCRELIPASE LIPASE\PANCRELIPASE PROTEASE
  8. PULMOZYME [Concomitant]
     Active Substance: DORNASE ALFA
  9. TRIKAFTA [Concomitant]
     Active Substance: ELEXACAFTOR\IVACAFTOR\TEZACAFTOR
  10. AZTREONAM LYSINE [Suspect]
     Active Substance: AZTREONAM LYSINE
     Indication: CYSTIC FIBROSIS LUNG
     Dosage: INHALE 1 VIAL VIA NEB TID 28 DAYS, ONE MONTH OFF - ONE MONTH ON
     Route: 055
     Dates: start: 20191212
  11. BANOPHEN [Concomitant]
     Active Substance: DIPHENHYDRAMINE HYDROCHLORIDE
  12. CLINDAMYCIN. [Concomitant]
     Active Substance: CLINDAMYCIN
  13. VITAMIN A NOS [Concomitant]
     Active Substance: VITAMIN A
  14. AMOXICILLIN AND CLAVUNATE POTASSIUM [Concomitant]
     Active Substance: AMOXICILLIN\CLAVULANATE POTASSIUM
  15. FEROSUL [Concomitant]
     Active Substance: FERROUS SULFATE
  16. HYDROCODONE BITARTRATE AND ACETAMINOPHEN [Concomitant]
     Active Substance: ACETAMINOPHEN\HYDROCODONE BITARTRATE
  17. MONTELUKAST [Concomitant]
     Active Substance: MONTELUKAST SODIUM
  18. ONDANSETRON [Concomitant]
     Active Substance: ONDANSETRON
  19. MELATONIN [Concomitant]
     Active Substance: MELATONIN
  20. MELOXICAM. [Concomitant]
     Active Substance: MELOXICAM
  21. VITAMIN E D ALPHA TOCOPHEROL [Concomitant]
  22. VITAMIN D3 [Concomitant]
     Active Substance: CHOLECALCIFEROL
  23. POLYETHYLENE GLYCOL [Concomitant]
     Active Substance: POLYETHYLENE GLYCOLS
  24. GABAPENTIN. [Concomitant]
     Active Substance: GABAPENTIN
  25. PROMETHAZINE [Concomitant]
     Active Substance: PROMETHAZINE HYDROCHLORIDE
  26. ATROVENT [Concomitant]
     Active Substance: IPRATROPIUM BROMIDE
  27. FAMOTIDINE. [Concomitant]
     Active Substance: FAMOTIDINE
  28. OXYCODONE/APAP [OXYCODONE;PARACETAMOL] [Concomitant]

REACTIONS (2)
  - Weight decreased [Unknown]
  - Vomiting [Unknown]

NARRATIVE: CASE EVENT DATE: 202001
